FAERS Safety Report 4469514-2 (Version None)
Quarter: 2004Q4

REPORT INFORMATION
  Report Type: 
  Country: None (occurrence: None)
  Receive Date: 20041005
  Receipt Date: 20040921
  Transmission Date: 20050328
  Serious: Yes (Other)
  Sender: FDA-Public Use
  Company Number: 2004234280BR

PATIENT
  Age: 73 Year
  Sex: Female
  Weight: 73 kg

DRUGS (2)
  1. DETRUSITOL (TOLTERIDONE) TABLET [Suspect]
     Indication: HYPERTONIC BLADDER
     Dosage: 4 MG, BID, ORAL
     Route: 048
     Dates: start: 20000405, end: 20040501
  2. PROPRANOLOL [Concomitant]

REACTIONS (1)
  - AMNESIA [None]
